FAERS Safety Report 8359834-3 (Version None)
Quarter: 2012Q2

REPORT INFORMATION
  Report Type: 
  Country: None (occurrence: None)
  Receive Date: 20120515
  Receipt Date: 20120507
  Transmission Date: 20120825
  Serious: Yes (Other)
  Sender: FDA-Public Use
  Company Number: US-JNJFOC-20120508864

PATIENT
  Age: 41 Year
  Sex: Female

DRUGS (1)
  1. LEVAQUIN [Suspect]
     Indication: BACTERIAL INFECTION
     Route: 048
     Dates: start: 20060201

REACTIONS (1)
  - ROTATOR CUFF SYNDROME [None]
